FAERS Safety Report 23221751 (Version 3)
Quarter: 2024Q1

REPORT INFORMATION
  Report Type: Spontaneous
  Country: US (occurrence: US)
  Receive Date: 20231123
  Receipt Date: 20240116
  Transmission Date: 20240410
  Serious: Yes (Other)
  Sender: FDA-Public Use
  Company Number: US-JNJFOC-20230618402

PATIENT
  Age: 4 Year
  Sex: Female
  Weight: 14.528 kg

DRUGS (1)
  1. NEUTROGENA MINERAL ULTRA SHEER DRY-TOUCH FACE AND BODY SUNSCREEN BROAD [Suspect]
     Active Substance: ZINC OXIDE
     Indication: Prophylaxis against solar radiation
     Dosage: APPLIED ONCE, USED AS DIRECTED.
     Route: 061
     Dates: start: 20230528, end: 20230528

REACTIONS (3)
  - Application site burn [Recovering/Resolving]
  - Pigmentation disorder [Recovering/Resolving]
  - Application site scar [Not Recovered/Not Resolved]

NARRATIVE: CASE EVENT DATE: 20230528
